FAERS Safety Report 17822950 (Version 1)
Quarter: 2020Q2

REPORT INFORMATION
  Report Type: Spontaneous
  Country: US (occurrence: US)
  Receive Date: 20200522
  Receipt Date: 20200522
  Transmission Date: 20200714
  Serious: Yes (Other)
  Sender: FDA-Public Use
  Company Number: None

PATIENT
  Age: 51 Year
  Sex: Female
  Weight: 106.5 kg

DRUGS (8)
  1. CLONAZEPAM 0.5 MG [Concomitant]
     Active Substance: CLONAZEPAM
  2. TIZANIDINE 4 MG [Concomitant]
     Active Substance: TIZANIDINE
  3. EVEROLIMUS. [Suspect]
     Active Substance: EVEROLIMUS
     Indication: CARCINOID TUMOUR OF THE SMALL BOWEL
     Route: 048
     Dates: start: 20200513, end: 20200522
  4. OXYCODONE 10 MG [Concomitant]
  5. PROCHLORPERAZINE 10 MG [Concomitant]
  6. VITAMIN D3 [Concomitant]
     Active Substance: CHOLECALCIFEROL
  7. AMITRIPTYLINE 100 MG [Concomitant]
  8. TRAZODONE [Concomitant]
     Active Substance: TRAZODONE HYDROCHLORIDE

REACTIONS (2)
  - Rash [None]
  - Swelling face [None]

NARRATIVE: CASE EVENT DATE: 20200522
